FAERS Safety Report 20885701 (Version 7)
Quarter: 2023Q2

REPORT INFORMATION
  Report Type: Report from Study
  Country: TH (occurrence: TH)
  Receive Date: 20220527
  Receipt Date: 20230620
  Transmission Date: 20230721
  Serious: Yes (Other)
  Sender: FDA-Public Use
  Company Number: TH-JNJFOC-20220552558

PATIENT
  Age: 50 Year
  Sex: Male

DRUGS (2)
  1. BORTEZOMIB [Suspect]
     Active Substance: BORTEZOMIB
     Indication: Plasma cell myeloma
     Dosage: 1.7 MILLIGRAM, 1/WEEK
     Route: 058
     Dates: start: 20220325, end: 20220328
  2. DARZALEX [Suspect]
     Active Substance: DARATUMUMAB
     Indication: Plasma cell myeloma
     Dosage: 650 MILLIGRAM, 1/WEEK
     Route: 041
     Dates: start: 20220325, end: 20220328

REACTIONS (1)
  - Drug ineffective [Unknown]
